FAERS Safety Report 5969035-1 (Version None)
Quarter: 2008Q4

REPORT INFORMATION
  Report Type: 
  Country: None (occurrence: None)
  Receive Date: 20081125
  Receipt Date: 20081125
  Transmission Date: 20090506
  Serious: Yes (Life-Threatening, Hospitalization)
  Sender: FDA-Public Use
  Company Number: None

PATIENT
  Age: 78 Year
  Sex: Male
  Weight: 99 kg

DRUGS (15)
  1. ZOSYN [Suspect]
     Indication: PNEUMONIA
     Dosage: 2.25G Q 8H IV
     Route: 042
     Dates: start: 20081022, end: 20081026
  2. ZOSYN [Suspect]
     Indication: PNEUMONIA
     Dosage: 2.25G Q 8H IV
     Route: 042
     Dates: start: 20081031, end: 20081104
  3. VANCOMYCIN [Suspect]
     Indication: PNEUMONIA
     Dosage: 2G X 1 IV
     Route: 042
     Dates: start: 20081103, end: 20081105
  4. LASIX [Concomitant]
  5. ASPIRIN [Concomitant]
  6. IMDUR [Concomitant]
  7. SPIRONOLACTONE [Concomitant]
  8. METOPROLOL TARTRATE [Concomitant]
  9. CELEXA [Concomitant]
  10. PRILOSEC [Concomitant]
  11. NITROGLYCERIN [Concomitant]
  12. ATIVAN [Concomitant]
  13. OCEAN NASAL SPRAY [Concomitant]
  14. TYLENOL (CAPLET) [Concomitant]
  15. TRAZODONE HCL [Concomitant]

REACTIONS (3)
  - BLOOD CREATININE INCREASED [None]
  - TUBULOINTERSTITIAL NEPHRITIS [None]
  - VASCULITIS [None]
